FAERS Safety Report 9999099 (Version 1)
Quarter: 2014Q1

REPORT INFORMATION
  Report Type: Spontaneous
  Country: IT (occurrence: None)
  Receive Date: 20140310
  Receipt Date: 20140310
  Transmission Date: 20141002
  Serious: Yes (Other)
  Sender: FDA-Public Use
  Company Number: AE-SPE-2014-005

PATIENT
  Age: 21 Year
  Sex: Female

DRUGS (1)
  1. GIASION [Suspect]
     Indication: DRUG ABUSE
     Route: 048
     Dates: start: 20140220, end: 20140220

REACTIONS (3)
  - Drug abuse [None]
  - Headache [None]
  - Nausea [None]
